FAERS Safety Report 10083148 (Version 1)
Quarter: 2014Q2

REPORT INFORMATION
  Report Type: Spontaneous
  Country: US (occurrence: US)
  Receive Date: 20140417
  Receipt Date: 20140417
  Transmission Date: 20141212
  Serious: No
  Sender: FDA-Public Use
  Company Number: US-BIOGENIDEC-2014BI035786

PATIENT
  Age: 67 Year
  Sex: Female

DRUGS (13)
  1. AVONEX [Suspect]
     Indication: MULTIPLE SCLEROSIS
     Route: 030
     Dates: start: 20110322
  2. BACLOFEN [Concomitant]
  3. DIGOXIN [Concomitant]
  4. ECOTRIN [Concomitant]
  5. HYDROCO/ APAP [Concomitant]
  6. ISOSORBIDE MONONITRATE ER [Concomitant]
  7. LEVOTHYROXINE SODIUM [Concomitant]
  8. PLAVIX [Concomitant]
  9. PROZAC [Concomitant]
  10. SIMVASTATIN [Concomitant]
  11. TRAMADOL HCL [Concomitant]
  12. PRAMIPEXOLE DIHYDROCHLORIDE [Concomitant]
  13. ZETIA [Concomitant]

REACTIONS (3)
  - Contusion [Unknown]
  - Fall [Recovered/Resolved]
  - Pain in extremity [Unknown]
